FAERS Safety Report 8388963 (Version 2)
Quarter: 2013Q2

REPORT INFORMATION
  Report Type: Spontaneous
  Country: US (occurrence: None)
  Receive Date: 20111221
  Receipt Date: 20121227
  Transmission Date: 20140414
  Serious: Yes (Hospitalization)
  Sender: FDA-Public Use
  Company Number: PHEH2011US04215

PATIENT
  Age: 28 Year
  Sex: Male

DRUGS (8)
  1. EXJADE (*CGP 72670*) UNKNOWN [Suspect]
     Dosage: 1125 MG, QD, ORAL
     Route: 048
  2. LORTAB (HYDROCODONE BITARTRATE, PARACETAMOL) [Concomitant]
  3. FOLIC ACID [Concomitant]
  4. HYDROXYUREA (HYDROXYCARBAMIDE) [Concomitant]
  5. ZOSYN (PIPERACILLIN SODIUM, TAZOBACTAM SODIUM) [Concomitant]
  6. COUMADINE (WARFARIN SODIUM) [Concomitant]
  7. NAPROSYN (NAPROXEN) [Concomitant]
  8. FLEXERIL (CYCLOBENZAPRINE HYDROCHLORIDE) [Concomitant]

REACTIONS (13)
  - SICKLE CELL ANAEMIA WITH CRISIS [None]
  - Back pain [None]
  - Pain in extremity [None]
  - Arthralgia [None]
  - Bone infarction [None]
  - Cough [None]
  - Wheezing [None]
  - Dyspnoea [None]
  - Lobar pneumonia [None]
  - Lung infiltration [None]
  - Oedema peripheral [None]
  - Oral candidiasis [None]
  - Leukocytosis [None]
